FAERS Safety Report 10037316 (Version 1)
Quarter: 2014Q1

REPORT INFORMATION
  Report Type: Spontaneous
  Country: US (occurrence: None)
  Receive Date: 20140325
  Receipt Date: 20140325
  Transmission Date: 20141002
  Serious: Yes (Hospitalization, Other)
  Sender: FDA-Public Use
  Company Number: None

PATIENT
  Age: 30 Year
  Sex: Female
  Weight: 68.04 kg

DRUGS (1)
  1. MIRENA BAYER [Suspect]
     Indication: CONTRACEPTION
     Route: 067
     Dates: start: 20140124, end: 20140321

REACTIONS (4)
  - Discomfort [None]
  - Dyspareunia [None]
  - Device dislocation [None]
  - Device dislocation [None]
